FAERS Safety Report 24942359 (Version 2)
Quarter: 2025Q1

REPORT INFORMATION
  Report Type: Spontaneous
  Country: PL (occurrence: PL)
  Receive Date: 20250207
  Receipt Date: 20250218
  Transmission Date: 20250408
  Serious: No
  Sender: NOVARTIS
  Company Number: PL-002147023-NVSC2025PL016931

PATIENT
  Age: 39 Year
  Sex: Male

DRUGS (4)
  1. CYCLOSPORINE [Suspect]
     Active Substance: CYCLOSPORINE
     Indication: Psoriasis
     Route: 065
  2. METHOTREXATE [Suspect]
     Active Substance: METHOTREXATE
     Indication: Psoriasis
     Dosage: 15 MG, QW
     Route: 058
  3. CLOBETASOL PROPIONATE [Suspect]
     Active Substance: CLOBETASOL PROPIONATE
     Indication: Psoriasis
     Route: 065
  4. BIMEKIZUMAB [Concomitant]
     Active Substance: BIMEKIZUMAB
     Indication: Product used for unknown indication
     Route: 065
     Dates: start: 202312

REACTIONS (5)
  - Psoriasis [Unknown]
  - Onycholysis [Unknown]
  - Nausea [Unknown]
  - Vomiting [Unknown]
  - Headache [Unknown]
